FAERS Safety Report 4788979-X (Version None)
Quarter: 2005Q3

REPORT INFORMATION
  Report Type: 
  Country: None (occurrence: None)
  Receive Date: 20050929
  Receipt Date: 20050913
  Transmission Date: 20060218
  Serious: Yes (Hospitalization)
  Sender: FDA-Public Use
  Company Number: THYM-10709

PATIENT
  Age: 68 Year
  Sex: Female
  Weight: 48.9885 kg

DRUGS (8)
  1. THYMOGLOBULIN [Suspect]
     Indication: TRANSPLANT
     Dosage: 70 MG QD IV
     Route: 042
     Dates: start: 20050504, end: 20050504
  2. APRESOLINE [Concomitant]
  3. ANCEF [Concomitant]
  4. SOLU-MEDROL [Concomitant]
  5. CELLCEPT [Concomitant]
  6. LOPRESSOR [Concomitant]
  7. BENADRYL [Concomitant]
  8. PEPCID [Concomitant]

REACTIONS (6)
  - CONVULSION [None]
  - ELECTROLYTE IMBALANCE [None]
  - ENCEPHALOPATHY [None]
  - HYPOMAGNESAEMIA [None]
  - HYPONATRAEMIA [None]
  - RESPIRATORY ARREST [None]
